FAERS Safety Report 9397429 (Version 2)
Quarter: 2013Q3

REPORT INFORMATION
  Report Type: Spontaneous
  Country: US (occurrence: US)
  Receive Date: 20130712
  Receipt Date: 20130805
  Transmission Date: 20140515
  Serious: No
  Sender: FDA-Public Use
  Company Number: US-JNJFOC-20130705132

PATIENT
  Age: 47 Year
  Sex: Male

DRUGS (4)
  1. DURAGESIC [Suspect]
     Indication: BONE DISORDER
     Route: 062
     Dates: start: 20130614
  2. DURAGESIC [Suspect]
     Indication: BACK PAIN
     Route: 062
     Dates: start: 20130614
  3. AMITRIPTYLINE [Concomitant]
     Indication: INSOMNIA
     Route: 048
     Dates: start: 2011
  4. LYRICA [Concomitant]
     Indication: NEURALGIA
     Route: 048
     Dates: start: 2011

REACTIONS (6)
  - Drug dose omission [Not Recovered/Not Resolved]
  - Application site irritation [Not Recovered/Not Resolved]
  - Off label use [Unknown]
  - Hyperhidrosis [Unknown]
  - Product quality issue [Unknown]
  - Drug administered at inappropriate site [Recovered/Resolved]
